FAERS Safety Report 8486575-4 (Version None)
Quarter: 2012Q3

REPORT INFORMATION
  Report Type: 
  Country: None (occurrence: None)
  Receive Date: 20120703
  Receipt Date: 20120622
  Transmission Date: 20120928
  Serious: Yes (Other)
  Sender: FDA-Public Use
  Company Number: NL-ELI_LILLY_AND_COMPANY-NL201206001897

PATIENT
  Sex: Male
  Weight: 100 kg

DRUGS (7)
  1. METFORMIN HCL [Concomitant]
     Dosage: 200 MG, QD
  2. ASCAL [Concomitant]
     Dosage: 80 MG, UNK
  3. LEVEMIR [Concomitant]
     Dosage: UNK, UNKNOWN
  4. LIPITOR [Concomitant]
     Dosage: 10 MG, UNK
  5. BYETTA [Suspect]
     Indication: OVERWEIGHT
     Dosage: UNK, UNKNOWN
     Dates: start: 20111101, end: 20120607
  6. LEVEMIR [Concomitant]
     Dosage: UNK, UNKNOWN
  7. NOVORAPID [Concomitant]
     Dosage: 15 U, TID

REACTIONS (3)
  - LUNG NEOPLASM MALIGNANT [None]
  - WEIGHT DECREASED [None]
  - OFF LABEL USE [None]
